FAERS Safety Report 9308725 (Version 1)
Quarter: 2013Q2

REPORT INFORMATION
  Report Type: Spontaneous
  Country: US (occurrence: US)
  Receive Date: 20130524
  Receipt Date: 20130524
  Transmission Date: 20140414
  Serious: No
  Sender: FDA-Public Use
  Company Number: US-NOVEN-13US006635

PATIENT
  Age: 57 Year
  Sex: Female

DRUGS (2)
  1. MINIVELLE [Suspect]
     Indication: MENOPAUSAL SYMPTOMS
     Dosage: 0.0375 MG
     Route: 062
  2. MINIVELLE [Suspect]
     Dosage: 0.05 MG
     Route: 062

REACTIONS (1)
  - Hot flush [Recovered/Resolved]
